FAERS Safety Report 6903249 (Version 4)
Quarter: 2012Q4

REPORT INFORMATION
  Report Type: Report from Study
  Country: JP (occurrence: JP)
  Receive Date: 20090206
  Receipt Date: 20121008
  Transmission Date: 20130627
  Serious: Yes (Other)
  Sender: FDA-Public Use
  Company Number: JP-PFIZER INC-2009163377

PATIENT
  Age: 58 Year
  Sex: Female

DRUGS (4)
  1. MYCOBUTIN [Suspect]
     Indication: MYCOBACTERIUM AVIUM COMPLEX INFECTION
     Dosage: 150 mg, 1x/day
     Route: 048
     Dates: start: 20090107, end: 20090127
  2. CLARITH [Concomitant]
     Indication: MYCOBACTERIUM AVIUM COMPLEX INFECTION
     Dosage: UNK
     Route: 048
  3. ETHAMBUTOL [Concomitant]
     Indication: MYCOBACTERIUM AVIUM COMPLEX INFECTION
     Dosage: 250 mg, 3x/day
     Route: 048
     Dates: start: 20070124, end: 20090127
  4. HUSCODE [Concomitant]
     Indication: COUGH
     Dosage: 2 DF, 2x/day
     Route: 048
     Dates: start: 20070124, end: 20090127

REACTIONS (1)
  - Rhabdomyolysis [Recovered/Resolved]
